FAERS Safety Report 23776923 (Version 1)
Quarter: 2024Q2

REPORT INFORMATION
  Report Type: Report from Study
  Country: US (occurrence: US)
  Receive Date: 20240424
  Receipt Date: 20240424
  Transmission Date: 20240715
  Serious: Yes (Other)
  Sender: FDA-Public Use
  Company Number: US-AMGEN-USASL2024080374

PATIENT
  Age: 71 Year
  Sex: Female
  Weight: 57.3 kg

DRUGS (33)
  1. EVENITY [Suspect]
     Active Substance: ROMOSOZUMAB-AQQG
     Indication: Osteoporosis
     Dosage: 210 MILLIGRAM, QMO
     Route: 058
     Dates: start: 20231127
  2. EVENITY [Suspect]
     Active Substance: ROMOSOZUMAB-AQQG
  3. PROLIA [Suspect]
     Active Substance: DENOSUMAB
     Indication: Osteoporosis
     Dosage: UNK
     Route: 065
     Dates: start: 201603, end: 201809
  4. PROLIA [Suspect]
     Active Substance: DENOSUMAB
     Dosage: UNK
     Route: 065
     Dates: start: 20211021, end: 20220428
  5. PROLIA [Suspect]
     Active Substance: DENOSUMAB
     Dosage: UNK
     Route: 065
     Dates: start: 20221117, end: 20230522
  6. LEVOTHYROXINE SODIUM [Concomitant]
     Active Substance: LEVOTHYROXINE SODIUM
     Dosage: UNK
  7. ZYRTEC [Concomitant]
     Active Substance: CETIRIZINE HYDROCHLORIDE
     Dosage: 10 MILLIGRAM, BID
     Route: 048
     Dates: start: 20110217
  8. SUDAFED PE CONGESTION [Concomitant]
     Active Substance: PHENYLEPHRINE HYDROCHLORIDE
     Dosage: UNK (0.5 TABLET (5 MG TOTAL) FOUR TIMES A DAY
     Route: 048
  9. Lmx [Concomitant]
     Dosage: UNK UNK, AS NECESSARY
     Route: 061
     Dates: start: 20181213
  10. TYLENOL [Concomitant]
     Active Substance: ACETAMINOPHEN
     Indication: Pain
     Dosage: 500 MILLIGRAM, EVERY SIX HOURS AS NEEDED FOR PAIN
     Route: 048
     Dates: start: 20190610
  11. PEPCID [Concomitant]
     Active Substance: FAMOTIDINE
     Dosage: 20 MILLIGRAM, QD
     Route: 048
  12. ZADITOR [Concomitant]
     Active Substance: KETOTIFEN FUMARATE
     Dosage: UNK UNK, BID (1 DROP INTO BOTH EYES)
  13. ASTELIN [Concomitant]
     Active Substance: AZELASTINE HYDROCHLORIDE
     Dosage: 137 MICROGRAM , BID (2 SPRAYS)
     Route: 045
     Dates: start: 20221208
  14. ELOCON [Concomitant]
     Active Substance: MOMETASONE FUROATE
     Dosage: UNK (DAILY AS NEEDED)
     Route: 061
     Dates: start: 20230414
  15. SYNTHROID [Concomitant]
     Active Substance: LEVOTHYROXINE SODIUM
     Dosage: 125 MICROGRAM, QD
     Route: 048
     Dates: start: 20230509
  16. ALVESCO [Concomitant]
     Active Substance: CICLESONIDE
     Dosage: 160 MICROGRAM 1PUFF TON TO LUNGS DAILY
     Dates: start: 20230921
  17. AMBIEN [Concomitant]
     Active Substance: ZOLPIDEM TARTRATE
     Dosage: 10 MILLIGRAM, I TABLET EVERY DAY AT BED TIME AS NEEDED
     Route: 048
     Dates: start: 20231116
  18. ALLEGRA [Concomitant]
     Active Substance: FEXOFENADINE HYDROCHLORIDE
     Dosage: 180 MILLIGRAM, QD
     Route: 048
  19. ZITHROMAX [Concomitant]
     Active Substance: AZITHROMYCIN DIHYDRATE
     Dosage: 250 MILLIGRAM, EVERY MONDAY, WEDNESDAY AND FRIDAY
     Route: 048
     Dates: start: 20231214
  20. PULMICORT TURBUHALER [Concomitant]
     Active Substance: BUDESONIDE
     Dosage: UNK (0.5 MG/2 ML, USE ONCE DAILY AS DIRECTED)
     Dates: start: 20240102
  21. LONITEN [Concomitant]
     Active Substance: MINOXIDIL
     Dosage: 2.5 MILLIGRAM, TAKE 1/2 TABLET AT BED TIME
     Dates: start: 20231218
  22. KENALOG [Concomitant]
     Active Substance: TRIAMCINOLONE ACETONIDE
     Dosage: UNK, APPLY TOPICALLY TWO TIMES A DAY
     Route: 061
     Dates: start: 20240111
  23. IMITREX [Concomitant]
     Active Substance: SUMATRIPTAN SUCCINATE
     Indication: Migraine
     Dosage: 50 MILLIGRAM, 1 TAB AS NECESSARY. MAY REPEAT ONCE AFTER 2 HOURS MAXIMUM OF 200 PER DAY)
     Dates: start: 20240215
  24. OMNICEF [Concomitant]
     Active Substance: CEFDINIR
     Dosage: 300 MILLIGRAM, BID
     Route: 048
     Dates: start: 20240314
  25. PROVENTIL HFA [Concomitant]
     Active Substance: ALBUTEROL SULFATE
     Dosage: 90 MICROGRAM, INHALE 2 PUFFS BY MOUTH EVERY 4 HOURS AS NEEDED
     Dates: start: 20240304
  26. VENTOLIN HFA [Concomitant]
     Active Substance: ALBUTEROL SULFATE
     Dosage: 90 MICROGRAM, INHALE 2 PUFFS BY MOUTH EVERY  FOUR HOURS AS NEEDED
     Dates: start: 20240304
  27. PROVENTIL [Concomitant]
     Active Substance: ALBUTEROL
     Dosage: UNK, USE 1 VIAL (2.5 MG TOTAL) BY NEBULIZATION EVERY FOUR HOURS AS NEEDED)
     Dates: start: 20240314
  28. VENTOLIN [Concomitant]
     Active Substance: ALBUTEROL SULFATE
     Dosage: UNK,  USE 1 VIAL (2.5 MG TOTAL) BY NEBULIZATION EVERY FOUR HOURS AS NEEDED)
     Dates: start: 20240314
  29. TYMLOS [Concomitant]
     Active Substance: ABALOPARATIDE
     Indication: Osteoporosis
     Dosage: UNK
     Dates: start: 20210915
  30. FOSAMAX [Concomitant]
     Active Substance: ALENDRONATE SODIUM
     Indication: Osteoporosis
     Dosage: UNK
     Dates: start: 201907, end: 201911
  31. RECLAST [Concomitant]
     Active Substance: ZOLEDRONIC ACID
     Indication: Osteoporosis
     Dosage: UNK
     Dates: start: 20191223
  32. NEXIUM [Concomitant]
     Active Substance: ESOMEPRAZOLE MAGNESIUM
  33. VITAMIN D [Concomitant]
     Active Substance: VITAMIN D NOS
     Dosage: UNK (400-1000 IU)

REACTIONS (9)
  - Pathological fracture [Unknown]
  - Hypocalcaemia [Unknown]
  - Myalgia [Unknown]
  - Headache [Unknown]
  - Drug intolerance [Unknown]
  - Tooth disorder [Unknown]
  - Therapy interrupted [Unknown]
  - Blood thyroid stimulating hormone increased [Unknown]
  - Blood phosphorus increased [Unknown]

NARRATIVE: CASE EVENT DATE: 20190501
